FAERS Safety Report 25094021 (Version 3)
Quarter: 2025Q3

REPORT INFORMATION
  Report Type: Spontaneous
  Country: US (occurrence: US)
  Receive Date: 20250319
  Receipt Date: 20250707
  Transmission Date: 20251021
  Serious: No
  Sender: SANOFI AVENTIS
  Company Number: US-SA-2025SA079722

PATIENT
  Age: 56 Year
  Sex: Female

DRUGS (2)
  1. DUPIXENT [Suspect]
     Active Substance: DUPILUMAB
     Indication: Asthma
     Route: 058
     Dates: start: 202411, end: 202411
  2. DUPIXENT [Suspect]
     Active Substance: DUPILUMAB
     Dosage: 300 MG, QOW
     Route: 058
     Dates: start: 2024, end: 20250414

REACTIONS (13)
  - Lacrimation increased [Unknown]
  - Eyelid skin dryness [Unknown]
  - Dry skin [Unknown]
  - Eyelid margin crusting [Not Recovered/Not Resolved]
  - Dry eye [Not Recovered/Not Resolved]
  - Eye pruritus [Not Recovered/Not Resolved]
  - Eye discharge [Not Recovered/Not Resolved]
  - Hordeolum [Not Recovered/Not Resolved]
  - Eyelid rash [Unknown]
  - Cheilitis [Unknown]
  - Eye pruritus [Unknown]
  - Oral herpes [Recovered/Resolved]
  - Rash [Unknown]
